FAERS Safety Report 4604420-1 (Version None)
Quarter: 2005Q2

REPORT INFORMATION
  Report Type: 
  Country: None (occurrence: None)
  Receive Date: 20050223
  Receipt Date: 20041108
  Transmission Date: 20051028
  Serious: No
  Sender: FDA-Public Use
  Company Number: PHEH2004US12048

PATIENT
  Age: 42 Year
  Sex: Female

DRUGS (1)
  1. ZELNORM [Suspect]
     Indication: IMPAIRED GASTRIC EMPTYING
     Dosage: 6 MG TID ORAL
     Route: 048
     Dates: start: 20041001

REACTIONS (2)
  - ARTHRALGIA [None]
  - BACK PAIN [None]
